FAERS Safety Report 5277222-3 (Version None)
Quarter: 2007Q1

REPORT INFORMATION
  Report Type: 
  Country: None (occurrence: None)
  Receive Date: 20070323
  Receipt Date: 20070323
  Transmission Date: 20070707
  Serious: No
  Sender: FDA-Public Use
  Company Number: None

PATIENT
  Age: 49 Year
  Sex: Female
  Weight: 99.7913 kg

DRUGS (1)
  1. FENTANYL [Suspect]
     Indication: PAIN
     Dosage: 100MCG EVERY 72 HOURS TRANSDERMAL
     Route: 062
     Dates: start: 20061111, end: 20070322

REACTIONS (1)
  - INADEQUATE ANALGESIA [None]
